FAERS Safety Report 8059676-2 (Version None)
Quarter: 2012Q1

REPORT INFORMATION
  Report Type: 
  Country: None (occurrence: None)
  Receive Date: 20120119
  Receipt Date: 20120119
  Transmission Date: 20120608
  Serious: Yes (Hospitalization)
  Sender: FDA-Public Use
  Company Number: None

PATIENT
  Age: 92 Year
  Sex: Female
  Weight: 55 kg

DRUGS (12)
  1. TOPROL-XL [Concomitant]
  2. PRILOSEC [Concomitant]
  3. DIGOXIN [Concomitant]
  4. VITAMIN D [Concomitant]
  5. COUMADIN [Suspect]
     Indication: ATRIAL FIBRILLATION
     Dosage: CHRONIC RECENTLY STOPPED
  6. ALLOPURINOL [Concomitant]
  7. ENALAPRIL MALEATE [Concomitant]
  8. CYANOCOBALAMIN [Concomitant]
  9. MOBIC [Suspect]
     Dosage: 7.5 MG DAILY PO CHRONIC
     Route: 048
  10. LIDODEM PATCH [Concomitant]
  11. REFRESH [Concomitant]
  12. LASIX [Concomitant]

REACTIONS (5)
  - ASTHENIA [None]
  - POLYP [None]
  - GASTROINTESTINAL HAEMORRHAGE [None]
  - ANAEMIA [None]
  - DIVERTICULUM INTESTINAL [None]
